FAERS Safety Report 13140669 (Version 8)
Quarter: 2017Q3

REPORT INFORMATION
  Report Type: Spontaneous
  Country: KR (occurrence: KR)
  Receive Date: 20170123
  Receipt Date: 20170807
  Transmission Date: 20171127
  Serious: Yes (Hospitalization, Other)
  Sender: FDA-Public Use
  Company Number: KR-009507513-1701KOR008826

PATIENT
  Age: 60 Year
  Sex: Female
  Weight: 60.3 kg

DRUGS (68)
  1. CISPLAN [Concomitant]
     Active Substance: CISPLATIN
     Indication: CERVIX CARCINOMA
     Dosage: 63.6 MG, ONCE, CYCLE 10; STRENGTH: 50MG/100ML
     Route: 042
     Dates: start: 20160402, end: 20160402
  2. TAXOL [Concomitant]
     Active Substance: PACLITAXEL
     Dosage: 177.9 MG, ONCE, CYCLE 11
     Route: 042
     Dates: start: 20160425, end: 20160425
  3. DEXAMETHASONE. [Concomitant]
     Active Substance: DEXAMETHASONE
     Indication: PROPHYLAXIS
     Dosage: 8 MG, QD
     Route: 048
     Dates: start: 20160403, end: 20160405
  4. DEXAMETHASONE SODIUM PHOSPHATE. [Concomitant]
     Active Substance: DEXAMETHASONE SODIUM PHOSPHATE
     Dosage: 10 MG, ONCE; STRENGTH: 5MG/ML
     Route: 042
     Dates: start: 20160425, end: 20160425
  5. ALOXI [Concomitant]
     Active Substance: PALONOSETRON HYDROCHLORIDE
     Indication: PREMEDICATION
     Dosage: 0.25 MG, ONCE
     Route: 042
     Dates: start: 20160402, end: 20160402
  6. ALOXI [Concomitant]
     Active Substance: PALONOSETRON HYDROCHLORIDE
     Dosage: 0.25 MG, ONCE
     Route: 042
     Dates: start: 20160605, end: 20160605
  7. MUTERAN [Concomitant]
     Active Substance: ACETYLCYSTEINE
     Indication: PRODUCTIVE COUGH
     Dosage: 600 MG (3 CAPSULE), BID
     Route: 048
     Dates: start: 20160329, end: 20160401
  8. MUTERAN [Concomitant]
     Active Substance: ACETYLCYSTEINE
     Dosage: 600 MG (3 CAPSULE), ONCE
     Route: 048
     Dates: start: 20160527, end: 20160528
  9. MACPERAN [Concomitant]
     Active Substance: METOCLOPRAMIDE HYDROCHLORIDE
     Indication: PROPHYLAXIS OF NAUSEA AND VOMITING
     Dosage: 10 ML (1 AMP), ONCE
     Route: 042
     Dates: start: 20160517, end: 20160523
  10. MEGACE F [Concomitant]
     Dosage: 1 PK, ONCE
     Route: 048
     Dates: start: 20160523, end: 20160523
  11. MEGACE F [Concomitant]
     Dosage: 1 PK, QD
     Route: 048
     Dates: start: 20160618
  12. MACPERAN [Concomitant]
     Active Substance: METOCLOPRAMIDE HYDROCHLORIDE
     Indication: PROPHYLAXIS OF NAUSEA AND VOMITING
     Dosage: 1 TABLET, TID
     Route: 048
     Dates: start: 20160427, end: 20160509
  13. ALDACTONE [Concomitant]
     Active Substance: SPIRONOLACTONE
     Indication: PROPHYLAXIS
     Dosage: 0.5 TABLET, BID
     Route: 048
     Dates: start: 20160424, end: 20160509
  14. EMEND (FOSAPREPITANT DIMEGLUMINE) [Suspect]
     Active Substance: FOSAPREPITANT DIMEGLUMINE
     Indication: PROPHYLAXIS OF NAUSEA AND VOMITING
     Dosage: 150 MG, ONCE
     Route: 042
     Dates: start: 20160402, end: 20160402
  15. AVASTIN [Concomitant]
     Active Substance: BEVACIZUMAB
     Dosage: 900 MG, ONCE, CYCLE 11
     Route: 042
     Dates: start: 20160420, end: 20160420
  16. CISPLAN [Concomitant]
     Active Substance: CISPLATIN
     Dosage: 50 MG, ONCE, CYCLE 11; STRENGTH: 50 MG/100 ML
     Route: 042
     Dates: start: 20160425, end: 20160425
  17. TAXOL [Concomitant]
     Active Substance: PACLITAXEL
     Indication: CERVIX CARCINOMA
     Dosage: 222.6 MG, ONCE, CYCLE 10
     Route: 042
     Dates: start: 20160402, end: 20160402
  18. MANNITOL. [Concomitant]
     Active Substance: MANNITOL
     Indication: PREMEDICATION
     Dosage: 70 MG, ONCE
     Route: 042
     Dates: start: 20160402, end: 20160402
  19. LUTHIONE [Concomitant]
     Dosage: 1200 MG, ONCE
     Route: 042
     Dates: start: 20160415, end: 20160415
  20. HEPARIN SODIUM. [Concomitant]
     Active Substance: HEPARIN SODIUM
     Dosage: 1 ML, ONCE
     Route: 042
     Dates: start: 20160422, end: 20160422
  21. HEPARIN SODIUM. [Concomitant]
     Active Substance: HEPARIN SODIUM
     Dosage: 1 ML, ONCE
     Route: 042
     Dates: start: 20160504, end: 20160504
  22. MACPERAN [Concomitant]
     Active Substance: METOCLOPRAMIDE HYDROCHLORIDE
     Dosage: 10 ML (1 AMP), ONCE
     Route: 042
     Dates: start: 20160529, end: 20160605
  23. DEXAMETHASONE SODIUM PHOSPHATE. [Concomitant]
     Active Substance: DEXAMETHASONE SODIUM PHOSPHATE
     Dosage: 8 MG, ONCE; STRENGTH: 5MG/ML
     Route: 042
     Dates: start: 20160605, end: 20160605
  24. CODEINE PHOSPHATE [Concomitant]
     Active Substance: CODEINE PHOSPHATE
     Indication: PAIN
     Dosage: 20 MG (1 TABLET), TID
     Route: 048
     Dates: start: 20160426, end: 20160602
  25. NESP [Concomitant]
     Active Substance: DARBEPOETIN ALFA
     Dosage: 1 SYR, ONCE; STRENGHT: 120 (UNITS NOT PROVIDED)
     Route: 042
     Dates: start: 20160415, end: 20160415
  26. MACPERAN [Concomitant]
     Active Substance: METOCLOPRAMIDE HYDROCHLORIDE
     Dosage: 10 ML (1 AMP), ONCE
     Route: 042
     Dates: start: 20160609, end: 20160609
  27. TABAXIN [Concomitant]
     Active Substance: PIPERACILLIN SODIUM\TAZOBACTAM SODIUM
     Dosage: 0.5 DF, QID, FORMULATION VIAL
     Route: 042
     Dates: start: 20160516, end: 20160530
  28. DEXAMETHASONE SODIUM PHOSPHATE. [Concomitant]
     Active Substance: DEXAMETHASONE SODIUM PHOSPHATE
     Indication: PREMEDICATION
     Dosage: 10 MG, ONCE; STRENGTH: 5MG/ML
     Route: 042
     Dates: start: 20160402, end: 20160402
  29. LUTHIONE [Concomitant]
     Dosage: 1200 MG, ONCE
     Route: 042
     Dates: start: 20160405, end: 20160405
  30. LUTHIONE [Concomitant]
     Dosage: 1200 MG, ONCE
     Route: 042
     Dates: start: 20160423, end: 20160423
  31. MACPERAN [Concomitant]
     Active Substance: METOCLOPRAMIDE HYDROCHLORIDE
     Dosage: 10 ML (1 AMP), ONCE
     Route: 042
     Dates: start: 20160526, end: 20160527
  32. TIROPA (TIROPRAMIDE HYDROCHLORIDE) [Concomitant]
     Dosage: 1 AMP, QD
     Route: 042
     Dates: start: 20160612
  33. XARELTO [Concomitant]
     Active Substance: RIVAROXABAN
     Indication: PROPHYLAXIS
     Dosage: 1 TABLET (20 MG), QD
     Route: 048
     Dates: start: 2016, end: 20160602
  34. TANTUM [Concomitant]
     Active Substance: BENZYDAMINE HYDROCHLORIDE
     Indication: PROPHYLAXIS
     Dosage: 1 BTL, QD
     Route: 049
     Dates: start: 20160330, end: 20160403
  35. PENIRAMIN [Concomitant]
     Indication: PROPHYLAXIS
     Dosage: 1 AMP., QD
     Route: 058
     Dates: start: 20160402, end: 20160403
  36. HEPARIN SODIUM. [Concomitant]
     Active Substance: HEPARIN SODIUM
     Dosage: 1 ML, ONCE
     Route: 042
     Dates: start: 20160506, end: 20160506
  37. MACPERAN [Concomitant]
     Active Substance: METOCLOPRAMIDE HYDROCHLORIDE
     Indication: PROPHYLAXIS
     Dosage: 10 ML (1 AMP), ONCE
     Route: 042
     Dates: start: 20160404, end: 20160404
  38. MAGNESIUM SULFATE. [Concomitant]
     Active Substance: MAGNESIUM SULFATE
     Indication: MINERAL SUPPLEMENTATION
     Dosage: 3 AMP, ONCE
     Route: 042
     Dates: start: 20160612, end: 20160612
  39. MEGACE F [Concomitant]
     Indication: PROPHYLAXIS
     Dosage: 1 PK, QD
     Route: 048
     Dates: start: 20160405, end: 20160509
  40. VESICARE [Concomitant]
     Active Substance: SOLIFENACIN SUCCINATE
     Indication: PROPHYLAXIS
     Dosage: 1 TABLET (5 MG), QD
     Route: 048
     Dates: start: 2016, end: 20160602
  41. TARGIN [Concomitant]
     Active Substance: NALOXONE HYDROCHLORIDE\OXYCODONE HYDROCHLORIDE
     Indication: PAIN
     Dosage: 1 DF, BID
     Route: 048
     Dates: start: 20160614
  42. EMEND (FOSAPREPITANT DIMEGLUMINE) [Suspect]
     Active Substance: FOSAPREPITANT DIMEGLUMINE
     Dosage: 150 MG, ONCE
     Route: 042
     Dates: start: 20160605, end: 20160605
  43. AVASTIN [Concomitant]
     Active Substance: BEVACIZUMAB
     Indication: CERVIX CARCINOMA
     Dosage: 900 MG, ONCE, CYCLE 10
     Route: 042
     Dates: start: 20160402, end: 20160402
  44. DEXAMETHASONE. [Concomitant]
     Active Substance: DEXAMETHASONE
     Dosage: 8 MG, QD
     Route: 048
     Dates: start: 20160426, end: 20160428
  45. ALOXI [Concomitant]
     Active Substance: PALONOSETRON HYDROCHLORIDE
     Dosage: 0.25 MG, ONCE
     Route: 042
     Dates: start: 20160425, end: 20160425
  46. BESZYME [Concomitant]
     Indication: PROPHYLAXIS AGAINST GASTROINTESTINAL ULCER
     Dosage: 1 TABLET, TID
     Route: 048
     Dates: start: 20160404, end: 20160430
  47. HEPARIN SODIUM. [Concomitant]
     Active Substance: HEPARIN SODIUM
     Dosage: 1 ML, ONCE
     Route: 042
     Dates: start: 20160408, end: 20160408
  48. TARGIN [Concomitant]
     Active Substance: NALOXONE HYDROCHLORIDE\OXYCODONE HYDROCHLORIDE
     Indication: PAIN
     Dosage: 1 TABLET, BID
     Route: 048
     Dates: start: 2016, end: 20160602
  49. PANTOLINE TABLETS [Concomitant]
     Indication: PROPHYLAXIS
     Dosage: 1 TABLET (20 MG), QD
     Route: 048
     Dates: start: 2016
  50. LYRICA [Concomitant]
     Active Substance: PREGABALIN
     Indication: PROPHYLAXIS
     Dosage: 225 MG, QD
     Route: 048
     Dates: start: 2016, end: 20160602
  51. EMEND (FOSAPREPITANT DIMEGLUMINE) [Suspect]
     Active Substance: FOSAPREPITANT DIMEGLUMINE
     Dosage: 150 MG, ONCE
     Route: 042
     Dates: start: 20160425, end: 20160425
  52. MUTERAN [Concomitant]
     Active Substance: ACETYLCYSTEINE
     Dosage: 600 MG (3 CAPSULE), ONCE
     Route: 048
     Dates: start: 20160424, end: 20160424
  53. BONALING A [Concomitant]
     Indication: PROPHYLAXIS
     Dosage: 1 TABLET, TID
     Route: 048
     Dates: start: 20160407, end: 20160415
  54. LUTHIONE [Concomitant]
     Indication: PROPHYLAXIS
     Dosage: 1200 MG, ONCE
     Route: 042
     Dates: start: 20160329, end: 20160329
  55. HEPARIN SODIUM. [Concomitant]
     Active Substance: HEPARIN SODIUM
     Dosage: 1 ML, QD
     Route: 042
     Dates: start: 20160611, end: 20160612
  56. MACPERAN [Concomitant]
     Active Substance: METOCLOPRAMIDE HYDROCHLORIDE
     Dosage: 10 ML (1 AMP), ONCE
     Route: 042
     Dates: start: 20160403, end: 20160403
  57. TIROPA (TIROPRAMIDE HYDROCHLORIDE) [Concomitant]
     Dosage: 1 AMP, ONCE
     Route: 042
     Dates: start: 20160508, end: 20160508
  58. MEGACE F [Concomitant]
     Dosage: 1 PK, QD
     Route: 048
     Dates: start: 20160526, end: 20160613
  59. CISPLAN [Concomitant]
     Active Substance: CISPLATIN
     Dosage: 76.5 MG, ONCE, CYCLE 1; STRENGTH: 50MG/100ML
     Route: 042
     Dates: start: 20160605, end: 20160605
  60. TANTUM [Concomitant]
     Active Substance: BENZYDAMINE HYDROCHLORIDE
     Dosage: 2 BTL, QD
     Route: 049
     Dates: start: 20160511
  61. CODEINE PHOSPHATE [Concomitant]
     Active Substance: CODEINE PHOSPHATE
     Dosage: 20 MG (1 TABLET), TID
     Route: 048
     Dates: start: 20160618
  62. MANNITOL. [Concomitant]
     Active Substance: MANNITOL
     Dosage: 70 MG, ONCE
     Route: 042
     Dates: start: 20160425, end: 20160425
  63. PENIRAMIN [Concomitant]
     Dosage: 1 AMP., ONCE
     Route: 058
     Dates: start: 20160425, end: 20160425
  64. NESP [Concomitant]
     Active Substance: DARBEPOETIN ALFA
     Indication: PROPHYLAXIS
     Dosage: 1 SYR, ONCE; STRENGHT: 120 (UNITS NOT PROVIDED)
     Route: 042
     Dates: start: 20160322, end: 20160322
  65. HEPARIN SODIUM. [Concomitant]
     Active Substance: HEPARIN SODIUM
     Indication: PROPHYLAXIS
     Dosage: 1 ML, ONCE
     Route: 042
     Dates: start: 20160329, end: 20160329
  66. MAGNESIUM SULFATE. [Concomitant]
     Active Substance: MAGNESIUM SULFATE
     Indication: PROPHYLAXIS
     Dosage: 1 AMP, ONCE
     Route: 042
     Dates: start: 20160403, end: 20160403
  67. TIROPA (TIROPRAMIDE HYDROCHLORIDE) [Concomitant]
     Indication: PROPHYLAXIS
     Dosage: 1 AMP, QD
     Route: 042
     Dates: start: 20160429, end: 20160430
  68. TIROPA (TIROPRAMIDE HYDROCHLORIDE) [Concomitant]
     Indication: PROPHYLAXIS
     Dosage: 100 MG, TID
     Route: 048
     Dates: start: 20160430, end: 20160507

REACTIONS (7)
  - Pancytopenia [Recovered/Resolved]
  - Hypertension [Not Recovered/Not Resolved]
  - Diarrhoea [Recovered/Resolved]
  - Diarrhoea [Recovered/Resolved]
  - Dyspnoea [Not Recovered/Not Resolved]
  - Dyspepsia [Recovered/Resolved]
  - Pneumonia [Not Recovered/Not Resolved]

NARRATIVE: CASE EVENT DATE: 20160422
